FAERS Safety Report 14072154 (Version 2)
Quarter: 2019Q2

REPORT INFORMATION
  Report Type: Report from Study
  Country: US (occurrence: US)
  Receive Date: 20171010
  Receipt Date: 20190408
  Transmission Date: 20190711
  Serious: No
  Sender: FDA-Public Use
  Company Number: US-SA-2017SA162260

PATIENT
  Age: 57 Year
  Sex: Male

DRUGS (4)
  1. DUPILUMAB [Suspect]
     Active Substance: DUPILUMAB
     Indication: DERMATITIS ATOPIC
     Dosage: 300 MG, 1X
     Route: 058
     Dates: start: 20160219, end: 20160219
  2. DUPILUMAB [Suspect]
     Active Substance: DUPILUMAB
     Dosage: 300 MG,QOW
     Route: 058
     Dates: start: 20170315
  3. DUPILUMAB [Suspect]
     Active Substance: DUPILUMAB
     Dosage: 600 MG,1X
     Route: 058
     Dates: start: 20170301, end: 20170301
  4. DUPILUMAB [Suspect]
     Active Substance: DUPILUMAB
     Indication: ECZEMA
     Dosage: 300 MG, QOW
     Route: 058

REACTIONS (6)
  - Pruritus [Not Recovered/Not Resolved]
  - Vision blurred [Not Recovered/Not Resolved]
  - Product use issue [Unknown]
  - Dyspepsia [Not Recovered/Not Resolved]
  - Skin haemorrhage [Not Recovered/Not Resolved]
  - Rash [Recovered/Resolved]

NARRATIVE: CASE EVENT DATE: 20160219
